FAERS Safety Report 11102139 (Version 1)
Quarter: 2015Q2

REPORT INFORMATION
  Report Type: Spontaneous
  Country: US (occurrence: US)
  Receive Date: 20150511
  Receipt Date: 20150511
  Transmission Date: 20150821
  Serious: Yes (Other)
  Sender: FDA-Public Use
  Company Number: US-BEH-2015050800

PATIENT
  Sex: Female
  Weight: 52 kg

DRUGS (18)
  1. KEFLEX [Concomitant]
     Active Substance: CEPHALEXIN
     Route: 048
  2. BIAXIN [Concomitant]
     Active Substance: CLARITHROMYCIN
     Route: 048
  3. ARTIFICIAL TEARS [Concomitant]
     Active Substance: GLYCERIN\HYPROMELLOSES\POLYETHYLENE GLYCOL 400
     Dosage: 1 DROP BOTH EYES
     Route: 047
  4. EPIPEN [Concomitant]
     Active Substance: EPINEPHRINE
     Route: 030
  5. EXCEDRIN [Concomitant]
     Active Substance: ACETAMINOPHEN\ASPIRIN\CAFFEINE
     Dosage: 2 TABS
     Route: 048
  6. DIPHENHYDRAMINE [Concomitant]
     Active Substance: DIPHENHYDRAMINE
     Route: 048
  7. PENICILLIN V POTASSIUM. [Concomitant]
     Active Substance: PENICILLIN V POTASSIUM
     Dosage: 1 DOSE PRN
     Route: 048
  8. LOMOTIL [Concomitant]
     Active Substance: ATROPINE SULFATE\DIPHENOXYLATE HYDROCHLORIDE
     Route: 048
  9. MIACALCIN [Concomitant]
     Active Substance: CALCITONIN SALMON
     Dosage: 1 SPRAY DAILY
     Route: 055
  10. LOTEMAX [Concomitant]
     Active Substance: LOTEPREDNOL ETABONATE
     Dosage: 0.5%; 1 DROP 6-9 TIMES DAILY BOTH EYES
     Route: 047
  11. IMODIUM AD [Concomitant]
     Active Substance: LOPERAMIDE HYDROCHLORIDE
     Dosage: 2 MG CAPLET
     Route: 048
  12. MECLIZINE [Concomitant]
     Active Substance: MECLIZINE\MECLIZINE HYDROCHLORIDE
     Route: 048
  13. BUDESONIDE EC [Concomitant]
     Active Substance: BUDESONIDE
     Dosage: 1 CAPSULE DAILY
     Route: 048
  14. HIZENTRA [Suspect]
     Active Substance: HUMAN IMMUNOGLOBULIN G
     Dosage: 4 GM 20 ML VIAL; 13 GM WEEKLY
     Route: 058
  15. BIAXIN [Concomitant]
     Active Substance: CLARITHROMYCIN
     Route: 048
  16. HIZENTRA [Suspect]
     Active Substance: HUMAN IMMUNOGLOBULIN G
     Indication: IMMUNODEFICIENCY COMMON VARIABLE
     Dosage: 1 GM 5 ML VIAL; 13 GM WEEKLY
     Route: 058
  17. MOBIC [Concomitant]
     Active Substance: MELOXICAM
     Route: 048
  18. CENTRUM SILVER [Concomitant]
     Active Substance: VITAMINS
     Route: 048

REACTIONS (1)
  - Rheumatoid arthritis [Unknown]
